FAERS Safety Report 7359643-8 (Version None)
Quarter: 2011Q1

REPORT INFORMATION
  Report Type: 
  Country: None (occurrence: None)
  Receive Date: 20110317
  Receipt Date: 20100629
  Transmission Date: 20110831
  Serious: No
  Sender: FDA-Public Use
  Company Number: US-PFIZER INC-2010081916

PATIENT
  Sex: Female
  Weight: 87.982 kg

DRUGS (2)
  1. NORVASC [Suspect]
     Indication: CEREBROVASCULAR ACCIDENT
     Dosage: 10 MG, DAILY
     Dates: start: 20060101, end: 20100601
  2. AMLODIPINE BESYLATE [Suspect]
     Dosage: UNK

REACTIONS (4)
  - HIGH DENSITY LIPOPROTEIN DECREASED [None]
  - POLLAKIURIA [None]
  - DRUG INEFFECTIVE [None]
  - BLOOD PRESSURE INADEQUATELY CONTROLLED [None]
